FAERS Safety Report 8914000 (Version 1)
Quarter: 2012Q4

REPORT INFORMATION
  Report Type: 
  Country: US (occurrence: US)
  Receive Date: 20121119
  Receipt Date: 20121119
  Transmission Date: 20130627
  Serious: Yes (Hospitalization)
  Sender: FDA-Public Use
  Company Number: US-BAYER-2012-118017

PATIENT
  Age: 47 Year
  Sex: Female
  Weight: 68.03 kg

DRUGS (10)
  1. YAZ [Suspect]
  2. YASMIN [Suspect]
  3. CALCIUM W/VITAMINS NOS [Concomitant]
  4. ZOLOFT [Concomitant]
     Indication: DEPRESSION
     Dosage: 50 mg, UNK
  5. RITALIN [Concomitant]
     Indication: ATTENTION DEFICIT DISORDER
  6. CHONDROITIN [Concomitant]
     Indication: ARTHRITIS
  7. GLUCOSAMINE [Concomitant]
     Indication: ARTHRITIS
  8. TYLENOL [Concomitant]
     Indication: PAIN
  9. DILAUDID [Concomitant]
  10. DARVOCET-N [Concomitant]

REACTIONS (1)
  - Pulmonary embolism [None]
